FAERS Safety Report 9649072 (Version 1)
Quarter: 2013Q4

REPORT INFORMATION
  Report Type: Spontaneous
  Country: US (occurrence: US)
  Receive Date: 20131028
  Receipt Date: 20131028
  Transmission Date: 20140711
  Serious: Yes (Other)
  Sender: FDA-Public Use
  Company Number: CHPA2013US016224

PATIENT
  Sex: Female

DRUGS (1)
  1. ASCRIPTIN BUFFERED [Suspect]
     Dosage: UNK, UNK
     Route: 048

REACTIONS (1)
  - Pneumonia [Recovered/Resolved]
